FAERS Safety Report 6145543-8 (Version None)
Quarter: 2009Q2

REPORT INFORMATION
  Report Type: 
  Country: None (occurrence: None)
  Receive Date: 20090402
  Receipt Date: 20090318
  Transmission Date: 20091009
  Serious: Yes (Other)
  Sender: FDA-Public Use
  Company Number: DSU-2009-00791

PATIENT
  Age: 73 Year
  Sex: Male

DRUGS (5)
  1. OLMESARTAN MEDOXOMIL [Suspect]
     Indication: HYPERTENSION
     Dosage: 40 MG (40 MG, QD), PER ORAL
     Route: 048
     Dates: start: 20040101
  2. CARDURAN NEO (DOXAZOSIN MESILATE) (TABLET) (DOXAZOSIN MESILATE) [Suspect]
     Indication: HYPERTENSION
     Dosage: 8 MG (8 MG, QD), PER ORAL
     Route: 048
     Dates: start: 20040101, end: 20081201
  3. ALISKIRENO (RASILEZ) (TABLET) [Suspect]
     Indication: HYPERTENSION
     Dosage: 300 MG (100 MG, QD), PER ORAL
     Route: 048
     Dates: start: 20081117, end: 20081231
  4. TORASEMIDA (TORASEMIDE) (TABLET) (TORASEMIDE) [Suspect]
     Indication: HYPERTENSION
     Dosage: 5 MG (5 MG, QD), PER ORAL
     Route: 048
     Dates: start: 20040101
  5. ACETYLSALICYLIC ACID SRT [Concomitant]

REACTIONS (3)
  - DRUG INTERACTION [None]
  - HYPERTENSION [None]
  - PERIPHERAL COLDNESS [None]
